FAERS Safety Report 4377100-8 (Version None)
Quarter: 2004Q2

REPORT INFORMATION
  Report Type: 
  Country: None (occurrence: None)
  Receive Date: 20040615
  Receipt Date: 20040609
  Transmission Date: 20050107
  Serious: Yes (Other)
  Sender: FDA-Public Use
  Company Number: 200415913GDDC

PATIENT
  Age: 67 Year
  Sex: Female

DRUGS (2)
  1. ARAVA [Suspect]
     Indication: RHEUMATOID ARTHRITIS
     Dates: start: 20040430, end: 20040520
  2. THYROXINE [Concomitant]
     Indication: HYPOTHYROIDISM
     Route: 048
     Dates: start: 20001201

REACTIONS (4)
  - HAEMOGLOBIN DECREASED [None]
  - ORAL PAIN [None]
  - RASH GENERALISED [None]
  - TREMOR [None]
